FAERS Safety Report 6973029-7 (Version None)
Quarter: 2010Q3

REPORT INFORMATION
  Report Type: 
  Country: None (occurrence: None)
  Receive Date: 20100824
  Receipt Date: 20100824
  Transmission Date: 20110219
  Serious: No
  Sender: FDA-Public Use
  Company Number: 309963

PATIENT
  Sex: Female

DRUGS (1)
  1. VICTOZA [Suspect]
     Route: 048

REACTIONS (4)
  - BLADDER PAIN [None]
  - MALAISE [None]
  - NAUSEA [None]
  - VOMITING [None]
